FAERS Safety Report 6430011-6 (Version None)
Quarter: 2009Q4

REPORT INFORMATION
  Report Type: 
  Country: None (occurrence: None)
  Receive Date: 20091104
  Receipt Date: 20091104
  Transmission Date: 20100525
  Serious: Yes (Hospitalization)
  Sender: FDA-Public Use
  Company Number: None

PATIENT
  Age: 41 Year
  Sex: Female
  Weight: 110.6777 kg

DRUGS (1)
  1. PROMETHAZINE HCL [Suspect]
     Indication: NAUSEA
     Dosage: IM
     Route: 030
     Dates: start: 20090718, end: 20090718

REACTIONS (2)
  - BURNING SENSATION [None]
  - INFLAMMATION [None]
